FAERS Safety Report 5669733-3 (Version None)
Quarter: 2008Q1

REPORT INFORMATION
  Report Type: 
  Country: None (occurrence: None)
  Receive Date: 20080317
  Receipt Date: 20080305
  Transmission Date: 20080703
  Serious: Yes (Other)
  Sender: FDA-Public Use
  Company Number: US-BAYER-200816072NA

PATIENT
  Sex: Male
  Weight: 73 kg

DRUGS (1)
  1. MAGNEVIST PREFILLED SYRINGE [Suspect]
     Indication: NUCLEAR MAGNETIC RESONANCE IMAGING BRAIN
     Dosage: UNIT DOSE: 15 ML
     Route: 042
     Dates: start: 20080305, end: 20080305

REACTIONS (4)
  - LOSS OF CONSCIOUSNESS [None]
  - MALAISE [None]
  - NAUSEA [None]
  - VOMITING [None]
